FAERS Safety Report 7568526-X (Version None)
Quarter: 2011Q2

REPORT INFORMATION
  Report Type: 
  Country: None (occurrence: None)
  Receive Date: 20110623
  Receipt Date: 20110620
  Transmission Date: 20111010
  Serious: Yes (Other)
  Sender: FDA-Public Use
  Company Number: ES-PFIZER INC-2011134879

PATIENT
  Age: 55 Year
  Sex: Female

DRUGS (5)
  1. ITRACONAZOLE [Concomitant]
     Indication: ANTIFUNGAL PROPHYLAXIS
     Dosage: 200 MG, 3X/DAY
     Route: 048
     Dates: start: 20110119, end: 20110122
  2. FLUDARABINE [Suspect]
     Indication: ACUTE MYELOID LEUKAEMIA
     Dosage: 47.4 MG, 1X/DAY
     Route: 042
     Dates: start: 20110120, end: 20110123
  3. CYTARABINE [Suspect]
     Indication: ACUTE MYELOID LEUKAEMIA
     Dosage: 3.1 G, 1X/DAY
     Route: 042
     Dates: start: 20110120, end: 20110123
  4. DEXAMETHASONE [Concomitant]
     Indication: CONJUNCTIVITIS
     Dosage: 2 DROPS, 3X/DAY
     Route: 047
     Dates: start: 20110120, end: 20110122
  5. IDARUBICIN HYDROCHLORIDE [Suspect]
     Indication: ACUTE MYELOID LEUKAEMIA
     Dosage: 15.8 MG, 1X/DAY
     Route: 042
     Dates: start: 20110120, end: 20110121

REACTIONS (3)
  - LEFT VENTRICULAR DYSFUNCTION [None]
  - RIGHT VENTRICULAR DYSFUNCTION [None]
  - ACUTE PULMONARY OEDEMA [None]
